FAERS Safety Report 16819336 (Version 2)
Quarter: 2019Q4

REPORT INFORMATION
  Report Type: Report from Study
  Country: ES (occurrence: ES)
  Receive Date: 20190917
  Receipt Date: 20191003
  Transmission Date: 20200122
  Serious: Yes (Hospitalization)
  Sender: FDA-Public Use
  Company Number: ES-TEVA-2019-ES-1108461

PATIENT
  Age: 89 Year
  Sex: Female

DRUGS (5)
  1. PERINDOPRIL [Interacting]
     Active Substance: PERINDOPRIL
     Route: 065
  2. OMEPRAZOLE. [Suspect]
     Active Substance: OMEPRAZOLE
     Route: 065
  3. IBUPROFEN. [Interacting]
     Active Substance: IBUPROFEN
     Route: 065
  4. ASPIRIN. [Interacting]
     Active Substance: ASPIRIN
     Route: 065
  5. METHOTREXATE. [Suspect]
     Active Substance: METHOTREXATE
     Indication: RHEUMATOID ARTHRITIS
     Route: 065

REACTIONS (3)
  - Pancytopenia [Recovering/Resolving]
  - Toxicity to various agents [Recovering/Resolving]
  - Drug interaction [Unknown]
